FAERS Safety Report 9626331 (Version 3)
Quarter: 2013Q4

REPORT INFORMATION
  Report Type: Spontaneous
  Country: IT (occurrence: IT)
  Receive Date: 20131016
  Receipt Date: 20131104
  Transmission Date: 20140711
  Serious: Yes (Other)
  Sender: FDA-Public Use
  Company Number: IT-PFIZER INC-2013293078

PATIENT
  Age: 40 Year
  Sex: Female

DRUGS (7)
  1. EFEXOR ER [Suspect]
     Dosage: 75 MG, DAILY
  2. LAMICTAL [Suspect]
     Dosage: 50 MG, 3X/DAY
     Route: 048
  3. AGGRENOX [Suspect]
     Dosage: UNK
  4. DIAMOX [Suspect]
     Dosage: UNK
  5. RIVOTRIL [Suspect]
     Dosage: UNK
  6. PENTACOL [Suspect]
     Dosage: UNK
  7. YASMIN [Suspect]
     Dosage: UNK

REACTIONS (2)
  - Unintended pregnancy [Unknown]
  - Drug ineffective [Unknown]
